FAERS Safety Report 20977388 (Version 2)
Quarter: 2022Q2

REPORT INFORMATION
  Report Type: Spontaneous
  Country: JP (occurrence: JP)
  Receive Date: 20220617
  Receipt Date: 20220622
  Transmission Date: 20220721
  Serious: No
  Sender: FDA-Public Use
  Company Number: JP-JNJFOC-20220559214

PATIENT
  Age: 4 Decade
  Sex: Female

DRUGS (3)
  1. ONEDURO [Suspect]
     Active Substance: FENTANYL
     Indication: Pain
     Dosage: FENTANYL (ONE DAY MATRIX PATCH) 100MCG/HR, STRENGTH: 100.00 MCG/HR
     Route: 062
  2. ONEDURO [Suspect]
     Active Substance: FENTANYL
  3. ONEDURO [Suspect]
     Active Substance: FENTANYL

REACTIONS (3)
  - Dermatitis contact [Not Recovered/Not Resolved]
  - Product adhesion issue [Unknown]
  - Product physical issue [Unknown]
